FAERS Safety Report 13186272 (Version 2)
Quarter: 2017Q1

REPORT INFORMATION
  Report Type: Spontaneous
  Country: US (occurrence: US)
  Receive Date: 20170204
  Receipt Date: 20170228
  Transmission Date: 20170428
  Serious: Yes (Other)
  Sender: FDA-Public Use
  Company Number: US-BRISTOL-MYERS SQUIBB COMPANY-BMS-2017-007273

PATIENT
  Sex: Female

DRUGS (1)
  1. YERVOY [Suspect]
     Active Substance: IPILIMUMAB
     Indication: METASTATIC MALIGNANT MELANOMA
     Dosage: 950 MG, UNK
     Route: 065
     Dates: start: 20160809

REACTIONS (3)
  - Urinary sediment present [Unknown]
  - Pruritus [Unknown]
  - Acute kidney injury [Unknown]
